FAERS Safety Report 5720715-2 (Version None)
Quarter: 2008Q2

REPORT INFORMATION
  Report Type: 
  Country: None (occurrence: None)
  Receive Date: 20080425
  Receipt Date: 20080425
  Transmission Date: 20081010
  Serious: Yes (Other)
  Sender: FDA-Public Use
  Company Number: None

PATIENT
  Age: 15 Year
  Sex: Female
  Weight: 50.6 kg

DRUGS (1)
  1. ORENCIA [Suspect]
     Indication: JUVENILE ARTHRITIS
     Dosage: 600 MG MONTHLY IV
     Route: 042
     Dates: start: 20060929, end: 20080425

REACTIONS (3)
  - ERYTHEMA [None]
  - SKIN HAEMORRHAGE [None]
  - SKIN LESION [None]
